FAERS Safety Report 8798822 (Version 1)
Quarter: 2012Q4

REPORT INFORMATION
  Report Type: 
  Country: US (occurrence: US)
  Receive Date: 20120920
  Receipt Date: 20120920
  Transmission Date: 20130627
  Serious: Yes (Life-Threatening, Other)
  Sender: FDA-Public Use
  Company Number: US-GLAXOSMITHKLINE-A0990806A

PATIENT
  Age: 69 Year
  Sex: Female
  Weight: 65.5 kg

DRUGS (11)
  1. FLOLAN [Suspect]
     Indication: PRODUCT USED FOR UNKNOWN INDICATION
     Dosage: 24NGKM Continuous
     Route: 042
  2. LASIX [Concomitant]
     Dosage: 20MG Per day
     Route: 048
  3. CLARITIN [Concomitant]
     Dosage: 10MG As required
     Route: 048
  4. OCUVITE PRESERVISION [Concomitant]
     Dosage: 1TAB Twice per day
  5. KLOR-CON [Concomitant]
     Dosage: 20MEQ Per day
  6. ADCIRCA [Concomitant]
     Dosage: 20MG Per day
     Route: 048
  7. OXYGEN [Concomitant]
  8. TRACLEER [Concomitant]
  9. PREDNISONE [Concomitant]
  10. VELETRI [Concomitant]
  11. IMURAN [Concomitant]

REACTIONS (9)
  - Dizziness [Recovered/Resolved]
  - Asthenia [Recovered/Resolved]
  - Hypoaesthesia [Recovered/Resolved]
  - Catheter site discharge [Recovered/Resolved]
  - Medical device complication [Recovered/Resolved]
  - Flushing [Unknown]
  - Oedema peripheral [Unknown]
  - Diarrhoea [Unknown]
  - Right ventricular heave [Unknown]
